FAERS Safety Report 13787882 (Version 1)
Quarter: 2017Q3

REPORT INFORMATION
  Report Type: Spontaneous
  Country: US (occurrence: US)
  Receive Date: 20170725
  Receipt Date: 20170725
  Transmission Date: 20171127
  Serious: No
  Sender: FDA-Public Use
  Company Number: US-JNJFOC-20170501691

PATIENT
  Age: 1 Year
  Sex: Female
  Weight: 12.7 kg

DRUGS (3)
  1. CHILDREN^S TYLENOL SUSPENSION LIQUID [Concomitant]
     Indication: PYREXIA
     Dosage: 2 DAYS
     Route: 065
     Dates: start: 20170429
  2. CHILDRENS MOTRIN [Suspect]
     Active Substance: IBUPROFEN
     Route: 048
  3. CHILDRENS MOTRIN [Suspect]
     Active Substance: IBUPROFEN
     Indication: PYREXIA
     Dosage: EVERY 8 HRS FOR 2 DAYS
     Route: 048
     Dates: start: 20170429

REACTIONS (1)
  - Drug ineffective [Unknown]

NARRATIVE: CASE EVENT DATE: 20170429
